FAERS Safety Report 7802303-7 (Version None)
Quarter: 2011Q4

REPORT INFORMATION
  Report Type: 
  Country: None (occurrence: None)
  Receive Date: 20111007
  Receipt Date: 20111003
  Transmission Date: 20120403
  Serious: Yes (Death)
  Sender: FDA-Public Use
  Company Number: TN-SANOFI-AVENTIS-2011SA064785

PATIENT
  Age: 69 Year
  Sex: Male

DRUGS (7)
  1. AMARYL [Concomitant]
     Route: 048
     Dates: end: 20110106
  2. HYPOTEN [Concomitant]
     Route: 048
     Dates: end: 20110106
  3. PLAVIX [Suspect]
     Route: 048
     Dates: start: 20100709, end: 20110106
  4. GLUCOPHAGE [Concomitant]
     Route: 048
     Dates: end: 20110106
  5. LASIX [Concomitant]
     Route: 048
     Dates: end: 20110106
  6. ASPIRIN [Concomitant]
     Route: 048
     Dates: end: 20110106
  7. PLAVIX [Suspect]
     Indication: STENT PLACEMENT
     Route: 048
     Dates: start: 20100709, end: 20110106

REACTIONS (1)
  - CARDIAC ARREST [None]
